FAERS Safety Report 5708271-6 (Version None)
Quarter: 2008Q2

REPORT INFORMATION
  Report Type: 
  Country: None (occurrence: None)
  Receive Date: 20080417
  Receipt Date: 20080408
  Transmission Date: 20081010
  Serious: Yes (Hospitalization, Other)
  Sender: FDA-Public Use
  Company Number: US-MERCK-0705USA05698

PATIENT
  Age: 63 Year
  Sex: Female
  Weight: 115 kg

DRUGS (8)
  1. SINGULAIR [Suspect]
     Indication: ASTHMA
     Route: 048
     Dates: start: 20050401, end: 20070401
  2. BENAZEPRIL HYDROCHLORIDE [Concomitant]
     Route: 065
  3. ATENOLOL [Concomitant]
     Route: 065
  4. SPIRONOLACTONE [Concomitant]
     Route: 065
  5. ACIPHEX [Concomitant]
     Route: 065
  6. LEXAPRO [Concomitant]
     Route: 065
  7. CLONIDINE [Concomitant]
     Route: 065
  8. NORVASC [Concomitant]
     Route: 065

REACTIONS (2)
  - ALLERGIC GRANULOMATOUS ANGIITIS [None]
  - BRONCHITIS [None]
